FAERS Safety Report 16889063 (Version 1)
Quarter: 2019Q4

REPORT INFORMATION
  Report Type: Spontaneous
  Country: DE (occurrence: DE)
  Receive Date: 20191007
  Receipt Date: 20191007
  Transmission Date: 20200122
  Serious: Yes (Death, Other)
  Sender: FDA-Public Use
  Company Number: DE-BRISTOL-MYERS SQUIBB COMPANY-BMS-2019-094691

PATIENT
  Age: 94 Year
  Sex: Male
  Weight: 80 kg

DRUGS (1)
  1. ELIQUIS [Suspect]
     Active Substance: APIXABAN
     Indication: CEREBROVASCULAR ACCIDENT PROPHYLAXIS
     Dosage: 2.5 MILLIGRAM, Q12H, 1-0-1
     Route: 048
     Dates: end: 20190531

REACTIONS (2)
  - Cerebral haemorrhage [Fatal]
  - Hemiparesis [Fatal]

NARRATIVE: CASE EVENT DATE: 20190531
